FAERS Safety Report 15646054 (Version 1)
Quarter: 2018Q4

REPORT INFORMATION
  Report Type: Spontaneous
  Country: RU (occurrence: RU)
  Receive Date: 20181121
  Receipt Date: 20181121
  Transmission Date: 20190205
  Serious: Yes (Hospitalization)
  Sender: FDA-Public Use
  Company Number: PHHY2018RU159548

PATIENT
  Age: 15 Year
  Sex: Female
  Weight: 51 kg

DRUGS (8)
  1. BARALGIN M [Concomitant]
     Indication: HEART RATE INCREASED
     Dosage: UNK
     Route: 048
     Dates: start: 20170601, end: 20170930
  2. ACTOVEGIN [Concomitant]
     Active Substance: BLOOD, BOVINE
     Indication: PRODUCT USED FOR UNKNOWN INDICATION
     Dosage: UNK
     Route: 030
     Dates: start: 20170801, end: 20170831
  3. PHEZAM [Concomitant]
     Indication: PRODUCT USED FOR UNKNOWN INDICATION
     Dosage: UNK
     Route: 048
     Dates: start: 20170801, end: 20170907
  4. ALMAGEL [Concomitant]
     Indication: ABDOMINAL PAIN UPPER
     Dosage: UNK
     Route: 048
     Dates: start: 20170701, end: 20170930
  5. FOLIC ACID. [Concomitant]
     Active Substance: FOLIC ACID
     Indication: FOLATE DEFICIENCY
     Dosage: UNK
     Route: 048
     Dates: start: 20170701
  6. METHOTREXATE (METHOTREXATE SODIUM) [Suspect]
     Active Substance: METHOTREXATE SODIUM
     Indication: JUVENILE IDIOPATHIC ARTHRITIS
     Dosage: 15 MG, QD
     Route: 059
     Dates: start: 20170616, end: 20170915
  7. NIMESULID [Concomitant]
     Active Substance: NIMESULIDE
     Indication: JUVENILE IDIOPATHIC ARTHRITIS
     Dosage: UNK
     Route: 048
     Dates: start: 20170601, end: 20170630
  8. TRIAMTERENE AND HYDROCHLOROTHIAZIDE [Concomitant]
     Active Substance: HYDROCHLOROTHIAZIDE\TRIAMTERENE
     Indication: PRODUCT USED FOR UNKNOWN INDICATION
     Dosage: UNK
     Route: 048
     Dates: start: 20170801, end: 20170930

REACTIONS (3)
  - Headache [Recovered/Resolved]
  - Nausea [Recovered/Resolved]
  - Palpitations [Recovered/Resolved]

NARRATIVE: CASE EVENT DATE: 20170915
